FAERS Safety Report 25765040 (Version 2)
Quarter: 2025Q3

REPORT INFORMATION
  Report Type: Report from Study
  Country: BR (occurrence: BR)
  Receive Date: 20250905
  Receipt Date: 20250929
  Transmission Date: 20251021
  Serious: Yes (Life-Threatening, Hospitalization, Other)
  Sender: ALEXION PHARMACEUTICALS
  Company Number: BR-AstraZeneca-CH-00941720A

PATIENT
  Age: 59 Year
  Sex: Female

DRUGS (3)
  1. SOLIRIS [Suspect]
     Active Substance: ECULIZUMAB
     Dosage: 600 MILLIGRAM, QW
     Route: 065
     Dates: start: 20200120, end: 20200218
  2. SOLIRIS [Suspect]
     Active Substance: ECULIZUMAB
     Dosage: 900 MILLIGRAM, Q2W
     Route: 065
     Dates: start: 20200303
  3. FOLIC ACID [Concomitant]
     Active Substance: FOLIC ACID
     Dosage: UNK, TIW
     Route: 065

REACTIONS (4)
  - Thrombosis [Recovered/Resolved]
  - Haemolysis [Not Recovered/Not Resolved]
  - Portal vein occlusion [Unknown]
  - Agitation [Not Recovered/Not Resolved]
